FAERS Safety Report 8934748 (Version 1)
Quarter: 2012Q4

REPORT INFORMATION
  Report Type: Report from Study
  Country: SE (occurrence: SE)
  Receive Date: 20121129
  Receipt Date: 20121129
  Transmission Date: 20130627
  Serious: Yes (Other)
  Sender: FDA-Public Use
  Company Number: SE-UCBSA-072085

PATIENT
  Age: 76 Year
  Sex: Male

DRUGS (3)
  1. CIMZIA [Suspect]
     Indication: RHEUMATOID ARTHRITIS
     Dosage: 200, 200 MG
     Dates: start: 20111205, end: 20121108
  2. PREDNISOLON [Concomitant]
     Dosage: 5,5 MG
     Dates: start: 20040819
  3. METHOTREXATE [Concomitant]
     Dosage: 20, 20 MG
     Dates: start: 20040819

REACTIONS (1)
  - Tuberculosis [Recovering/Resolving]
